FAERS Safety Report 19977667 (Version 2)
Quarter: 2022Q3

REPORT INFORMATION
  Report Type: Spontaneous
  Country: US (occurrence: US)
  Receive Date: 20211020
  Receipt Date: 20220702
  Transmission Date: 20221027
  Serious: No
  Sender: FDA-Public Use
  Company Number: US-LUPIN PHARMACEUTICALS INC.-2021-19578

PATIENT
  Age: 73 Year
  Sex: Male

DRUGS (2)
  1. ALBUTEROL SULFATE [Suspect]
     Active Substance: ALBUTEROL SULFATE
     Indication: Product used for unknown indication
     Dosage: USES HIS INHALER WHEN HE NEEDS TO, ONLY ONCE OR TWICE A DAY (2 PUFFS EVERY 4 HOURS)
  2. ALBUTEROL SULFATE [Suspect]
     Active Substance: ALBUTEROL SULFATE
     Dosage: USES HIS INHALER WHEN HE NEEDS TO, ONLY ONCE OR TWICE A DAY (2 PUFFS EVERY 4 HOURS)

REACTIONS (3)
  - Device malfunction [Unknown]
  - Treatment noncompliance [Unknown]
  - No adverse event [Unknown]
